FAERS Safety Report 9578017 (Version 1)
Quarter: 2013Q4

REPORT INFORMATION
  Report Type: Spontaneous
  Country: US (occurrence: US)
  Receive Date: 20131001
  Receipt Date: 20131001
  Transmission Date: 20140711
  Serious: No
  Sender: FDA-Public Use
  Company Number: US-AMGEN-USASP2013011228

PATIENT
  Age: 7 Year
  Sex: Female
  Weight: 30.39 kg

DRUGS (5)
  1. ENBREL [Suspect]
     Indication: JUVENILE IDIOPATHIC ARTHRITIS
     Dosage: 25 MG, QWK
     Route: 058
  2. EPIPEN JR 2-PAK [Concomitant]
     Dosage: UNK
  3. MELOXICAM [Concomitant]
     Dosage: 7.5 MG, UNK
  4. FOLIC ACID [Concomitant]
     Dosage: 20 MG, UNK
  5. METHOTREXATE [Concomitant]
     Dosage: 25 MG/ML, UNK

REACTIONS (2)
  - Pyrexia [Unknown]
  - Vomiting [Unknown]
